FAERS Safety Report 6710616-5 (Version None)
Quarter: 2010Q2

REPORT INFORMATION
  Report Type: 
  Country: None (occurrence: None)
  Receive Date: 20100504
  Receipt Date: 20100428
  Transmission Date: 20101027
  Serious: Yes (Other)
  Sender: FDA-Public Use
  Company Number: IL-MERCK-1004ISR00015

PATIENT
  Age: 20 Year
  Sex: Male
  Weight: 105 kg

DRUGS (7)
  1. SINGULAIR [Suspect]
     Indication: ASTHMA
     Route: 048
     Dates: start: 20070701, end: 20090716
  2. SINGULAIR [Suspect]
     Route: 048
     Dates: start: 20090718, end: 20090718
  3. SINGULAIR [Suspect]
     Indication: RHINITIS
     Route: 048
     Dates: start: 20070701, end: 20090716
  4. SINGULAIR [Suspect]
     Route: 048
     Dates: start: 20090718, end: 20090718
  5. ADVAIR DISKUS 100/50 [Concomitant]
     Route: 065
  6. ALBUTEROL [Concomitant]
     Route: 065
  7. OMALIZUMAB [Concomitant]
     Route: 065
     Dates: end: 20090420

REACTIONS (3)
  - FATIGUE [None]
  - INITIAL INSOMNIA [None]
  - POOR QUALITY SLEEP [None]
